FAERS Safety Report 24578210 (Version 1)
Quarter: 2024Q4

REPORT INFORMATION
  Report Type: Spontaneous
  Country: BG (occurrence: BG)
  Receive Date: 20241104
  Receipt Date: 20241104
  Transmission Date: 20250115
  Serious: Yes (Hospitalization)
  Sender: ABBVIE
  Company Number: BG-ABBVIE-5985835

PATIENT
  Age: 58 Year
  Sex: Female

DRUGS (1)
  1. HUMIRA [Suspect]
     Active Substance: ADALIMUMAB
     Indication: Ankylosing spondylitis
     Dosage: 1 FL. EVERY 14 DAYS
     Route: 058

REACTIONS (4)
  - Periarthritis [Unknown]
  - Arthralgia [Unknown]
  - Sacroiliitis [Unknown]
  - Antinuclear antibody positive [Unknown]
